FAERS Safety Report 5332408-4 (Version None)
Quarter: 2007Q2

REPORT INFORMATION
  Report Type: 
  Country: None (occurrence: None)
  Receive Date: 20070522
  Receipt Date: 20070522
  Transmission Date: 20071010
  Serious: No
  Sender: FDA-Public Use
  Company Number: None

PATIENT
  Sex: Female
  Weight: 90.7194 kg

DRUGS (3)
  1. OXYCONTIN [Suspect]
     Indication: FIBROMYALGIA
     Dosage: 40 MG 2 DAILY CONTINIOUS OVER LAST 2 YR
  2. OXYCONTIN [Suspect]
     Indication: OSTEOARTHRITIS
     Dosage: 40 MG 2 DAILY CONTINIOUS OVER LAST 2 YR
  3. OXYCONTIN [Suspect]
     Indication: PAIN
     Dosage: 40 MG 2 DAILY CONTINIOUS OVER LAST 2 YR

REACTIONS (1)
  - SOMNOLENCE [None]
